FAERS Safety Report 4386546-3 (Version None)
Quarter: 2004Q2

REPORT INFORMATION
  Report Type: 
  Country: None (occurrence: None)
  Receive Date: 20040623
  Receipt Date: 20040607
  Transmission Date: 20050107
  Serious: Yes (Other)
  Sender: FDA-Public Use
  Company Number: SUSI-2004-00361

PATIENT
  Age: 10 Year
  Sex: Male

DRUGS (1)
  1. ADDERALL XR (AMPHETAMINE ASPARTATE, AMPHETAMINE SULFATE, DEXTROAMPHETA [Suspect]
     Indication: ATTENTION DEFICIT/HYPERACTIVITY DISORDER
     Dosage: 25 MG, 1X/DAY,QD
     Dates: start: 20020801

REACTIONS (3)
  - DEAFNESS BILATERAL [None]
  - GLAUCOMA [None]
  - RETINAL HAEMORRHAGE [None]
